FAERS Safety Report 11067571 (Version 2)
Quarter: 2015Q3

REPORT INFORMATION
  Report Type: Spontaneous
  Country: IT (occurrence: IT)
  Receive Date: 20150427
  Receipt Date: 20150706
  Transmission Date: 20151125
  Serious: Yes (Other)
  Sender: FDA-Public Use
  Company Number: IT-ROCHE-1568521

PATIENT
  Age: 68 Year
  Sex: Male

DRUGS (6)
  1. FLUOROURACILE [Suspect]
     Active Substance: FLUOROURACIL
     Route: 041
     Dates: start: 20150203
  2. AVASTIN [Suspect]
     Active Substance: BEVACIZUMAB
     Indication: COLON CANCER METASTATIC
     Dosage: 1 VIAL OF 400 MG OF CONC FOR SOLUTION FOR INFUSION
     Route: 042
     Dates: start: 20150220, end: 20150306
  3. OXALIPLATIN. [Suspect]
     Active Substance: OXALIPLATIN
     Indication: COLON CANCER METASTATIC
     Dosage: 5 MG/ML CONCENTRATE FOR SOLUTION FOR INFUSION
     Route: 042
     Dates: start: 20150202, end: 20150306
  4. FLUOROURACILE [Suspect]
     Active Substance: FLUOROURACIL
     Route: 040
     Dates: start: 20150203
  5. LEDERFOLIN [Concomitant]
     Active Substance: LEUCOVORIN CALCIUM
     Dosage: 175 MG POWDER FOR SOLUTION FOR INFUSION
     Route: 042
     Dates: start: 20150202, end: 20150306
  6. FLUOROURACILE [Suspect]
     Active Substance: FLUOROURACIL
     Indication: COLON CANCER METASTATIC
     Dosage: 50 MG/ML SOLUTION FOR INJECTION OR INFUSION
     Route: 042
     Dates: start: 20150202, end: 20150306

REACTIONS (2)
  - Catheter site pain [Not Recovered/Not Resolved]
  - Axillary vein thrombosis [Not Recovered/Not Resolved]

NARRATIVE: CASE EVENT DATE: 20150320
